FAERS Safety Report 11529136 (Version 1)
Quarter: 2015Q3

REPORT INFORMATION
  Report Type: Spontaneous
  Country: US (occurrence: US)
  Receive Date: 20150921
  Receipt Date: 20150921
  Transmission Date: 20151125
  Serious: Yes (Other)
  Sender: FDA-Public Use
  Company Number: US-CELGENE-USA-2015091409

PATIENT
  Age: 85 Year
  Sex: Male

DRUGS (1)
  1. REVLIMID [Suspect]
     Active Substance: LENALIDOMIDE
     Indication: PLASMA CELL MYELOMA
     Dosage: 15 MILLIGRAM
     Route: 048
     Dates: start: 201507

REACTIONS (5)
  - Unevaluable event [Unknown]
  - Nausea [Unknown]
  - Haemorrhage urinary tract [Recovered/Resolved]
  - Urinary retention [Unknown]
  - Vomiting [Unknown]

NARRATIVE: CASE EVENT DATE: 2015
